FAERS Safety Report 8560998-7 (Version None)
Quarter: 2012Q3

REPORT INFORMATION
  Report Type: 
  Country: None (occurrence: None)
  Receive Date: 20120723
  Receipt Date: 20120712
  Transmission Date: 20120928
  Serious: Yes (Disabling, Other)
  Sender: FDA-Public Use
  Company Number: ACO_31081_2012

PATIENT
  Age: 59 Year
  Sex: Female

DRUGS (2)
  1. AMPYRA [Suspect]
     Indication: GAIT DISTURBANCE
     Dosage: 10 MG, BID
     Dates: start: 20120501, end: 20120601
  2. AVONEX [Concomitant]

REACTIONS (3)
  - ABASIA [None]
  - SPEECH DISORDER [None]
  - ECONOMIC PROBLEM [None]
